FAERS Safety Report 6388595-2 (Version None)
Quarter: 2009Q3

REPORT INFORMATION
  Report Type: 
  Country: None (occurrence: None)
  Receive Date: 20090930
  Receipt Date: 20090914
  Transmission Date: 20100115
  Serious: Yes (Hospitalization)
  Sender: FDA-Public Use
  Company Number: DSA_41682_2009

PATIENT
  Sex: Female

DRUGS (3)
  1. DILTIAZEM [Suspect]
     Indication: HYPERTENSION
     Dosage: (300 MG QD ORAL)
     Route: 048
     Dates: start: 20070101, end: 20090613
  2. LASILIX /00032601/ (LASILIX - FUROSEMIDE) 40 MG (NOT SPECIFIED) [Suspect]
     Indication: HYPERTENSION
     Dosage: (40 MG QD ORAL)
     Route: 048
     Dates: start: 20070101, end: 20090613
  3. ATACAND [Suspect]
     Indication: HYPERTENSION
     Dosage: (16 MG QD ORAL)
     Route: 048
     Dates: start: 20070101, end: 20090613

REACTIONS (5)
  - ATRIOVENTRICULAR BLOCK FIRST DEGREE [None]
  - ELECTROCARDIOGRAM PR PROLONGATION [None]
  - ELECTROCARDIOGRAM Q WAVES [None]
  - HEART RATE DECREASED [None]
  - MALAISE [None]
